FAERS Safety Report 7324911-2 (Version None)
Quarter: 2011Q1

REPORT INFORMATION
  Report Type: 
  Country: None (occurrence: None)
  Receive Date: 20110301
  Receipt Date: 20101108
  Transmission Date: 20110831
  Serious: Yes (Hospitalization, Disabling, Other)
  Sender: FDA-Public Use
  Company Number: US-MERCK-1002USA00927

PATIENT
  Age: 82 Year
  Sex: Female
  Weight: 70 kg

DRUGS (8)
  1. CALTRATE [Concomitant]
     Route: 065
  2. FOSAMAX [Suspect]
     Indication: OSTEOPOROSIS
     Route: 048
     Dates: start: 20030101, end: 20100102
  3. ARIXTRA [Suspect]
     Indication: THROMBOSIS PROPHYLAXIS
     Route: 065
  4. VYTORIN [Suspect]
     Indication: BLOOD CHOLESTEROL
     Route: 048
     Dates: end: 20091201
  5. VITAMIN D (UNSPECIFIED) [Concomitant]
     Route: 065
  6. ASPIRIN [Suspect]
     Route: 065
  7. PREDNISONE [Concomitant]
     Indication: CHRONIC OBSTRUCTIVE PULMONARY DISEASE
     Route: 065
  8. SYNTHROID [Concomitant]
     Route: 065

REACTIONS (13)
  - WRIST FRACTURE [None]
  - CELLULITIS [None]
  - NASAL DRYNESS [None]
  - HAEMOGLOBIN ABNORMAL [None]
  - FEMUR FRACTURE [None]
  - PAIN IN EXTREMITY [None]
  - PLATELET COUNT DECREASED [None]
  - FALL [None]
  - IDIOPATHIC THROMBOCYTOPENIC PURPURA [None]
  - CREPITATIONS [None]
  - NASAL DISCOMFORT [None]
  - HAEMATOCRIT DECREASED [None]
  - LIMB DISCOMFORT [None]
